FAERS Safety Report 19507690 (Version 1)
Quarter: 2021Q3

REPORT INFORMATION
  Report Type: Spontaneous
  Country: DE (occurrence: DE)
  Receive Date: 20210708
  Receipt Date: 20210708
  Transmission Date: 20211014
  Serious: Yes (Hospitalization, Other)
  Sender: FDA-Public Use
  Company Number: DE-MYLANLABS-2021M1039018

PATIENT
  Age: 74 Year
  Sex: Male

DRUGS (8)
  1. CANDESARTAN. [Suspect]
     Active Substance: CANDESARTAN
     Indication: PRODUCT USED FOR UNKNOWN INDICATION
     Dosage: 16 MILLIGRAM, QD
     Route: 048
  2. FLUTICASONE W/SALMETEROL [Concomitant]
     Active Substance: FLUTICASONE PROPIONATE\SALMETEROL XINAFOATE
     Dosage: FLUTICASONE DOSE HAS BENN HALVED
  3. INDINAVIR [Concomitant]
     Active Substance: INDINAVIR
     Dosage: UNK
  4. METFORMIN [Concomitant]
     Active Substance: METFORMIN HYDROCHLORIDE
     Dosage: 500 MILLIGRAM, BID
  5. RITONAVIR. [Concomitant]
     Active Substance: RITONAVIR
     Dosage: UNK
  6. FLUTICASONE W/SALMETEROL [Concomitant]
     Active Substance: FLUTICASONE PROPIONATE\SALMETEROL XINAFOATE
     Dosage: 500/50 MCG TWO TIMES DAILY FOR 1 YEARS
  7. LAMIVUDINE. [Concomitant]
     Active Substance: LAMIVUDINE
     Dosage: UNK
  8. ZIDOVUDINE. [Concomitant]
     Active Substance: ZIDOVUDINE
     Dosage: UNK

REACTIONS (11)
  - Osteopenia [Unknown]
  - Memory impairment [Unknown]
  - Lethargy [Unknown]
  - Femur fracture [Unknown]
  - Secondary adrenocortical insufficiency [Unknown]
  - Weight decreased [Unknown]
  - Obstructive pancreatitis [Unknown]
  - Disturbance in attention [Unknown]
  - Cushing^s syndrome [Unknown]
  - Weight increased [Unknown]
  - Fatigue [Unknown]
